FAERS Safety Report 9240404 (Version 1)
Quarter: 2013Q2

REPORT INFORMATION
  Report Type: Spontaneous
  Country: US (occurrence: US)
  Receive Date: 20130418
  Receipt Date: 20130418
  Transmission Date: 20140414
  Serious: No
  Sender: FDA-Public Use
  Company Number: US-ASTRAZENECA-2013SE22342

PATIENT
  Age: 54 Year
  Sex: Female
  Weight: 143.8 kg

DRUGS (15)
  1. SYMBICORT [Suspect]
     Indication: CHRONIC OBSTRUCTIVE PULMONARY DISEASE
     Dosage: 320 MCG BID
     Route: 055
     Dates: start: 2009
  2. CRESTOR [Suspect]
     Route: 048
     Dates: start: 201304
  3. PROAIR [Concomitant]
  4. POTASSIUM [Concomitant]
  5. SINGULAIR [Concomitant]
  6. LASIX [Concomitant]
  7. XANAFLEX [Concomitant]
  8. PRINIDIL [Concomitant]
     Indication: HYPERTENSION
     Route: 048
  9. MOBIC [Concomitant]
  10. LAMICTAL [Concomitant]
     Indication: DEPRESSION
  11. VITAMIN D [Concomitant]
  12. NORVASC [Concomitant]
  13. ZOLOFT [Concomitant]
  14. VICODAN [Concomitant]
     Dosage: BID
  15. KLONIPIN [Concomitant]

REACTIONS (4)
  - Dyspnoea [Unknown]
  - Wheezing [Unknown]
  - Cough [Unknown]
  - Intentional drug misuse [Unknown]
